FAERS Safety Report 5572424-0 (Version None)
Quarter: 2007Q4

REPORT INFORMATION
  Report Type: 
  Country: None (occurrence: None)
  Receive Date: 20071222
  Receipt Date: 20071214
  Transmission Date: 20080405
  Serious: Yes (Other)
  Sender: FDA-Public Use
  Company Number: US-PFIZER INC-2007093276

PATIENT
  Sex: Male
  Weight: 90.7 kg

DRUGS (9)
  1. ZOLOFT [Suspect]
     Indication: FAMILY STRESS
  2. ZOLOFT [Suspect]
     Indication: ADVERSE DRUG REACTION
  3. ZOLOFT [Suspect]
     Indication: DEPRESSION
  4. XANAX [Suspect]
     Indication: NERVOUSNESS
  5. CHANTIX [Suspect]
     Indication: SMOKING CESSATION THERAPY
  6. STATINS [Suspect]
     Indication: BLOOD CHOLESTEROL
  7. INTERFERON [Suspect]
     Indication: HEPATITIS C
  8. ZETIA [Concomitant]
     Indication: BLOOD CHOLESTEROL
  9. FISH OIL [Concomitant]

REACTIONS (18)
  - ADVERSE DRUG REACTION [None]
  - ANXIETY [None]
  - ARTHRALGIA [None]
  - BLOOD CHOLESTEROL ABNORMAL [None]
  - CHEST PAIN [None]
  - CONSTIPATION [None]
  - DEPRESSION [None]
  - DRUG HYPERSENSITIVITY [None]
  - DRY THROAT [None]
  - FEELING ABNORMAL [None]
  - HEPATITIS C [None]
  - MALAISE [None]
  - NERVOUSNESS [None]
  - SLEEP APNOEA SYNDROME [None]
  - SNORING [None]
  - SOMNOLENCE [None]
  - UNEVALUABLE EVENT [None]
  - VOMITING [None]
